APPROVED DRUG PRODUCT: PREGABALIN
Active Ingredient: PREGABALIN
Strength: 20MG/ML
Dosage Form/Route: SOLUTION;ORAL
Application: A207623 | Product #001 | TE Code: AA
Applicant: ALKEM LABORATORIES LTD
Approved: Jul 19, 2019 | RLD: No | RS: No | Type: RX